FAERS Safety Report 20565336 (Version 1)
Quarter: 2022Q1

REPORT INFORMATION
  Report Type: Spontaneous
  Country: US (occurrence: US)
  Receive Date: 20220308
  Receipt Date: 20220308
  Transmission Date: 20220424
  Serious: No
  Sender: FDA-Public Use
  Company Number: TU21-1030557

PATIENT
  Sex: Female

DRUGS (4)
  1. ESTRADIOL [Suspect]
     Active Substance: ESTRADIOL
     Indication: Atrophic vulvovaginitis
     Dosage: 1 G, 3 TIMES A WEEK
     Route: 061
     Dates: end: 20211224
  2. ESTRADIOL [Suspect]
     Active Substance: ESTRADIOL
     Dosage: 1 G, QD
     Route: 061
     Dates: start: 20211112
  3. CHOLECALCIFEROL [Concomitant]
     Active Substance: CHOLECALCIFEROL
     Indication: Dry mouth
  4. VITAMIN B12 [Concomitant]
     Active Substance: CYANOCOBALAMIN

REACTIONS (4)
  - Dry mouth [Recovering/Resolving]
  - Breast tenderness [Unknown]
  - Wrong technique in product usage process [Unknown]
  - Muscle spasms [Unknown]
